FAERS Safety Report 21206280 (Version 1)
Quarter: 2022Q3

REPORT INFORMATION
  Report Type: Report from Study
  Country: IN (occurrence: IN)
  Receive Date: 20220812
  Receipt Date: 20220812
  Transmission Date: 20221027
  Serious: Yes (Death, Hospitalization, Other)
  Sender: FDA-Public Use
  Company Number: IN-NOVARTISPH-NVSC2022IN182351

PATIENT
  Age: 35 Year
  Sex: Female

DRUGS (1)
  1. ALPELISIB [Suspect]
     Active Substance: ALPELISIB
     Indication: Breast cancer
     Dosage: 200 MG, QD
     Route: 065
     Dates: start: 202206

REACTIONS (6)
  - Death [Fatal]
  - Hypotension [Unknown]
  - Metastases to central nervous system [Not Recovered/Not Resolved]
  - Heart rate increased [Unknown]
  - Loss of consciousness [Not Recovered/Not Resolved]
  - Blood glucose increased [Unknown]

NARRATIVE: CASE EVENT DATE: 20220701
